FAERS Safety Report 8307383 (Version 4)
Quarter: 2016Q4

REPORT INFORMATION
  Report Type: Report from Study
  Country: SE (occurrence: SE)
  Receive Date: 20111222
  Receipt Date: 20161117
  Transmission Date: 20170207
  Serious: Yes (Other)
  Sender: FDA-Public Use
  Company Number: SE-ROCHE-1020835

PATIENT

DRUGS (4)
  1. RITUXIMAB [Suspect]
     Active Substance: RITUXIMAB
     Indication: MANTLE CELL LYMPHOMA
     Route: 042
  2. LENALIDOMIDE [Suspect]
     Active Substance: LENALIDOMIDE
     Indication: MANTLE CELL LYMPHOMA
     Route: 065
  3. PREDNISOLONE. [Concomitant]
     Active Substance: PREDNISOLONE
     Route: 065
  4. BENDAMUSTINE [Suspect]
     Active Substance: BENDAMUSTINE
     Indication: MANTLE CELL LYMPHOMA
     Route: 065

REACTIONS (33)
  - Cerebral infarction [Unknown]
  - Fatigue [Unknown]
  - Skin cancer [Unknown]
  - Prostate cancer [Unknown]
  - Neutropenia [Unknown]
  - Rash [Unknown]
  - Oesophagitis [Unknown]
  - Acute coronary syndrome [Unknown]
  - Oedema [Unknown]
  - Hepatocellular carcinoma [Unknown]
  - Basal cell carcinoma [Unknown]
  - Weight decreased [Unknown]
  - Confusional state [Unknown]
  - Neuropathy peripheral [Unknown]
  - Gamma-glutamyltransferase increased [Unknown]
  - Hypersensitivity [Unknown]
  - Arrhythmia [Unknown]
  - Decreased appetite [Unknown]
  - Hodgkin^s disease [Unknown]
  - Squamous cell carcinoma [Unknown]
  - Diarrhoea [Unknown]
  - Mucosal inflammation [Unknown]
  - Musculoskeletal pain [Unknown]
  - Hepatic failure [Unknown]
  - Infection [Unknown]
  - Thrombocytopenia [Unknown]
  - Pyrexia [Unknown]
  - Renal cancer [Unknown]
  - Anaemia [Unknown]
  - Nausea [Unknown]
  - Vomiting [Unknown]
  - Blood alkaline phosphatase increased [Unknown]
  - Hypotension [Unknown]
